FAERS Safety Report 18706859 (Version 1)
Quarter: 2021Q1

REPORT INFORMATION
  Report Type: Spontaneous
  Country: US (occurrence: US)
  Receive Date: 20210106
  Receipt Date: 20210106
  Transmission Date: 20210419
  Serious: No
  Sender: FDA-Public Use
  Company Number: None

PATIENT
  Age: 85 Year
  Sex: Male
  Weight: 103.4 kg

DRUGS (20)
  1. CAPECITABINE. [Suspect]
     Active Substance: CAPECITABINE
     Indication: LUNG NEOPLASM MALIGNANT
     Route: 048
     Dates: start: 20201211, end: 20210106
  2. BLOOD GLUCOSE TEST [Concomitant]
  3. ATORVASTATIN [Concomitant]
     Active Substance: ATORVASTATIN
  4. INSULIN SYRINGE NEEDLE [Concomitant]
  5. NOVOLOG [Concomitant]
     Active Substance: INSULIN ASPART
  6. ONDANSETRON [Concomitant]
     Active Substance: ONDANSETRON
  7. PYRIDOXINE [Concomitant]
     Active Substance: PYRIDOXINE
  8. DIAZEPAM. [Concomitant]
     Active Substance: DIAZEPAM
  9. AMIODARONE [Concomitant]
     Active Substance: AMIODARONE
  10. DRONABINOL. [Concomitant]
     Active Substance: DRONABINOL
  11. FUROSEMIDE. [Concomitant]
     Active Substance: FUROSEMIDE
  12. METOPROLOL SUCCINATE. [Concomitant]
     Active Substance: METOPROLOL SUCCINATE
  13. OLANZAPINE. [Concomitant]
     Active Substance: OLANZAPINE
  14. OMEPRAZOLE. [Concomitant]
     Active Substance: OMEPRAZOLE
  15. MEMANTINE HCL [Concomitant]
     Active Substance: MEMANTINE
  16. METFORMIN [Concomitant]
     Active Substance: METFORMIN HYDROCHLORIDE
  17. PAROXETINE. [Concomitant]
     Active Substance: PAROXETINE
  18. HYDROXYZINE [Concomitant]
     Active Substance: HYDROXYZINE HYDROCHLORIDE
  19. PEN NEEDLES [Concomitant]
  20. SPIRONOLACTONE. [Concomitant]
     Active Substance: SPIRONOLACTONE

REACTIONS (1)
  - Hospice care [None]

NARRATIVE: CASE EVENT DATE: 20210106
